FAERS Safety Report 25708142 (Version 2)
Quarter: 2025Q3

REPORT INFORMATION
  Report Type: Report from Study
  Country: CA (occurrence: CA)
  Receive Date: 20250820
  Receipt Date: 20250828
  Transmission Date: 20251020
  Serious: Yes (Hospitalization)
  Sender: JOHNSON AND JOHNSON
  Company Number: CA-JNJFOC-20250821014

PATIENT
  Age: 49 Year
  Sex: Female
  Weight: 68.8 kg

DRUGS (8)
  1. RYBREVANT [Suspect]
     Active Substance: AMIVANTAMAB-VMJW
     Indication: Non-small cell lung cancer
     Route: 042
     Dates: start: 20250812
  2. RYBREVANT [Suspect]
     Active Substance: AMIVANTAMAB-VMJW
     Route: 042
     Dates: start: 20250813
  3. RYBREVANT [Suspect]
     Active Substance: AMIVANTAMAB-VMJW
     Dosage: 3 VIALS, ONCE WEEKLY FOR WEEKS 2-5
     Route: 042
     Dates: start: 20250819
  4. RYBREVANT [Suspect]
     Active Substance: AMIVANTAMAB-VMJW
     Route: 042
  5. LAZCLUZE [Suspect]
     Active Substance: LAZERTINIB
     Indication: Non-small cell lung cancer
     Route: 048
     Dates: start: 20250812
  6. ACETAMINOPHEN [Concomitant]
     Active Substance: ACETAMINOPHEN
     Indication: Product used for unknown indication
     Route: 048
  7. DEXAMETHASONE [Concomitant]
     Active Substance: DEXAMETHASONE
     Indication: Product used for unknown indication
     Route: 042
  8. DIPHENHYDRAMINE [Concomitant]
     Active Substance: DIPHENHYDRAMINE
     Indication: Product used for unknown indication
     Route: 042

REACTIONS (2)
  - Oxygen saturation decreased [Recovered/Resolved]
  - Secretion discharge [Recovered/Resolved]

NARRATIVE: CASE EVENT DATE: 20250813
